FAERS Safety Report 6011863-0 (Version None)
Quarter: 2008Q4

REPORT INFORMATION
  Report Type: 
  Country: None (occurrence: None)
  Receive Date: 20081218
  Receipt Date: 20081027
  Transmission Date: 20090506
  Serious: No
  Sender: FDA-Public Use
  Company Number: US-ASTRAZENECA-2008UW20057

PATIENT
  Sex: Female

DRUGS (7)
  1. CRESTOR [Suspect]
     Route: 048
     Dates: start: 20080904
  2. CELEXA [Concomitant]
  3. CYMBALTA [Concomitant]
  4. SYNTHROID [Concomitant]
  5. PREMARIN [Concomitant]
  6. ZANAFLEX [Concomitant]
  7. HYDROCODONE BITARTRATE [Concomitant]

REACTIONS (3)
  - MUSCULOSKELETAL PAIN [None]
  - MYALGIA [None]
  - SENSATION OF HEAVINESS [None]
